FAERS Safety Report 6112271-4 (Version None)
Quarter: 2009Q1

REPORT INFORMATION
  Report Type: 
  Country: None (occurrence: None)
  Receive Date: 20090311
  Receipt Date: 20090311
  Transmission Date: 20090719
  Serious: Yes (Hospitalization, Other)
  Sender: FDA-Public Use
  Company Number: None

PATIENT
  Age: 46 Year
  Sex: Male

DRUGS (3)
  1. FENTANYL-50 [Suspect]
     Indication: PARALYSIS
     Dosage: 50 MCG/HR EVERY 72 HRS 2 PATCHES
     Dates: start: 20090205, end: 20090212
  2. FENTANYL-50 [Suspect]
     Indication: SURGERY
     Dosage: 50 MCG/HR EVERY 72 HRS 2 PATCHES
     Dates: start: 20090205, end: 20090212
  3. FENTANYL-50 [Suspect]
     Dosage: 50 MCG/HR Q 72 HRS - DISPOSED OF

REACTIONS (17)
  - CARDIAC DISORDER [None]
  - CHEST PAIN [None]
  - CHILLS [None]
  - CONFUSIONAL STATE [None]
  - FALL [None]
  - FEELING ABNORMAL [None]
  - HYPOPHAGIA [None]
  - INJURY [None]
  - INSOMNIA [None]
  - IRRITABILITY [None]
  - LOSS OF CONSCIOUSNESS [None]
  - MEDICATION ERROR [None]
  - MENTAL IMPAIRMENT [None]
  - OEDEMA PERIPHERAL [None]
  - OVERDOSE [None]
  - PYREXIA [None]
  - VOMITING [None]
